FAERS Safety Report 13195871 (Version 1)
Quarter: 2017Q1

REPORT INFORMATION
  Report Type: Spontaneous
  Country: US (occurrence: US)
  Receive Date: 20170207
  Receipt Date: 20170207
  Transmission Date: 20170428
  Serious: Yes (Death)
  Sender: FDA-Public Use
  Company Number: None

PATIENT
  Age: 70 Year
  Sex: Female
  Weight: 51.5 kg

DRUGS (3)
  1. WARFARIN [Suspect]
     Active Substance: WARFARIN
  2. ASA [Concomitant]
     Active Substance: ASPIRIN
  3. CLOPIDOGREL [Suspect]
     Active Substance: CLOPIDOGREL BISULFATE

REACTIONS (4)
  - Cardio-respiratory arrest [None]
  - Pulmonary embolism [None]
  - Pulseless electrical activity [None]
  - Abdominal wall haematoma [None]

NARRATIVE: CASE EVENT DATE: 20161214
